FAERS Safety Report 8487146-6 (Version None)
Quarter: 2012Q3

REPORT INFORMATION
  Report Type: 
  Country: None (occurrence: None)
  Receive Date: 20120704
  Receipt Date: 20120627
  Transmission Date: 20120928
  Serious: Yes (Other)
  Sender: FDA-Public Use
  Company Number: US-BRISTOL-MYERS SQUIBB COMPANY-16662991

PATIENT
  Age: 69 Year
  Sex: Female
  Weight: 60 kg

DRUGS (7)
  1. ASPIRIN [Concomitant]
  2. LISINOPRIL AND HYDROCHLOROTHIAZIDE [Concomitant]
  3. FERROUS SULFATE TAB [Concomitant]
  4. MULTI-VITAMIN [Concomitant]
  5. IPILIMUMAB [Suspect]
     Indication: MALIGNANT MELANOMA
     Dosage: LAST ADMINISTERED DATE:04MAY2012. REMOVED FROM PROTOCOL ON 08JUN12
     Route: 042
     Dates: start: 20120504, end: 20120504
  6. AMBIEN [Concomitant]
  7. CALCIUM + VITAMIN D [Concomitant]

REACTIONS (2)
  - LYMPHOPENIA [None]
  - RASH [None]
